FAERS Safety Report 24019898 (Version 1)
Quarter: 2024Q2

REPORT INFORMATION
  Report Type: Spontaneous
  Country: GB (occurrence: GB)
  Receive Date: 20240627
  Receipt Date: 20240627
  Transmission Date: 20240716
  Serious: Yes (Other)
  Sender: FDA-Public Use
  Company Number: GB-TAKEDA-2024TUS038298

PATIENT
  Age: 37 Year
  Sex: Female

DRUGS (5)
  1. ADCETRIS [Suspect]
     Active Substance: BRENTUXIMAB VEDOTIN
     Indication: Hodgkin^s disease recurrent
     Dosage: 1.8 MILLIGRAM/KILOGRAM, INTRAVENOUS INFUSION OVER 30 MINUTES Q3WEEKS
  2. DOXORUBICIN HYDROCHLORIDE [Suspect]
     Active Substance: DOXORUBICIN HYDROCHLORIDE
     Indication: Hodgkin^s disease recurrent
     Dosage: 25 MILLIGRAM/SQ. METER, DAY 1 AND DAY 15
     Route: 040
  3. VINBLASTINE [Suspect]
     Active Substance: VINBLASTINE
     Indication: Hodgkin^s disease recurrent
     Dosage: 6 MILLIGRAM/SQ. METER, DAY 1 AND DAY 15
     Route: 042
  4. BLEOMYCIN SULFATE [Suspect]
     Active Substance: BLEOMYCIN SULFATE
     Indication: Hodgkin^s disease recurrent
     Dosage: 10,000 UNITS PER SQUARE METRE AND FREQUENCY(DAY 1 AND DAY 15)
     Route: 042
  5. DACARBAZINE [Suspect]
     Active Substance: DACARBAZINE
     Indication: Hodgkin^s disease recurrent
     Dosage: 375 MILLIGRAM/SQ. METER, DAY 1 AND DAY 15
     Route: 042

REACTIONS (9)
  - Haemoglobin decreased [Unknown]
  - Night sweats [Unknown]
  - White blood cell count decreased [Unknown]
  - C-reactive protein abnormal [Unknown]
  - Lymphadenopathy [Unknown]
  - Neuropathy peripheral [Unknown]
  - Anaemia [Unknown]
  - Pyrexia [Unknown]
  - Maternal exposure during pregnancy [Unknown]
